FAERS Safety Report 5388900-X (Version None)
Quarter: 2007Q3

REPORT INFORMATION
  Report Type: 
  Country: None (occurrence: None)
  Receive Date: 20070713
  Receipt Date: 20070713
  Transmission Date: 20080115
  Serious: Yes (Hospitalization)
  Sender: FDA-Public Use
  Company Number: None

PATIENT
  Sex: Female
  Weight: 107.5025 kg

DRUGS (10)
  1. TEMODAR [Suspect]
     Indication: METASTASES TO CENTRAL NERVOUS SYSTEM
     Dosage: Q.D. P.O.
     Route: 048
     Dates: start: 20070530, end: 20070612
  2. PROCARDIA [Concomitant]
  3. VICODIN ES [Concomitant]
  4. ZOCOR [Concomitant]
  5. NITRO-BID [Concomitant]
  6. K+ [Concomitant]
  7. LOPRESSOR [Concomitant]
  8. VOLTAREN [Concomitant]
  9. FLEXERIL [Concomitant]
  10. OMEPRAZOLE [Concomitant]

REACTIONS (6)
  - DYSPNOEA [None]
  - GLIOBLASTOMA MULTIFORME [None]
  - NAUSEA [None]
  - PRESYNCOPE [None]
  - PULMONARY EMBOLISM [None]
  - VOMITING [None]
